FAERS Safety Report 8234526-X (Version None)
Quarter: 2012Q1

REPORT INFORMATION
  Report Type: 
  Country: None (occurrence: None)
  Receive Date: 20120321
  Receipt Date: 20120307
  Transmission Date: 20120608
  Serious: Yes (Death, Life-Threatening, Hospitalization, Other)
  Sender: FDA-Public Use
  Company Number: 2008AL012280

PATIENT
  Age: 56 Year
  Sex: Female
  Weight: 67.1324 kg

DRUGS (16)
  1. POTASSIUM [Concomitant]
  2. CALCIUM CARBONATE [Concomitant]
  3. COQ10 [Concomitant]
  4. LASIX [Concomitant]
  5. MULTI-VITAMIN [Concomitant]
  6. PROTONIX [Concomitant]
  7. DIGOXIN [Suspect]
     Indication: CONGESTIVE CARDIOMYOPATHY
     Dosage: 0.125 MG;;PO
     Route: 048
     Dates: start: 20041224, end: 20070322
  8. DIGOXIN [Suspect]
     Indication: CARDIAC FAILURE CONGESTIVE
     Dosage: 0.125 MG;;PO
     Route: 048
     Dates: start: 20041224, end: 20070322
  9. COREG [Concomitant]
  10. LEVOPHED [Concomitant]
  11. ALDACTONE [Concomitant]
  12. LOVENOX [Concomitant]
  13. SPIRONOLACTONE [Concomitant]
  14. VASOTEC [Concomitant]
  15. DOPAMINE HCL [Concomitant]
  16. ZOSYN [Concomitant]

REACTIONS (27)
  - CARDIOGENIC SHOCK [None]
  - ACIDOSIS [None]
  - URINARY TRACT INFECTION [None]
  - TRICUSPID VALVE INCOMPETENCE [None]
  - PULMONARY ARTERIAL PRESSURE INCREASED [None]
  - DECEREBRATION [None]
  - TOXICITY TO VARIOUS AGENTS [None]
  - HYPOTENSION [None]
  - PULSELESS ELECTRICAL ACTIVITY [None]
  - AORTIC VALVE INCOMPETENCE [None]
  - LEFT ATRIAL DILATATION [None]
  - MULTIPLE INJURIES [None]
  - CARDIO-RESPIRATORY ARREST [None]
  - HYPOXIC-ISCHAEMIC ENCEPHALOPATHY [None]
  - BACK PAIN [None]
  - LEFT VENTRICULAR HYPERTROPHY [None]
  - EMOTIONAL DISTRESS [None]
  - BRADYCARDIA [None]
  - BUNDLE BRANCH BLOCK LEFT [None]
  - PULMONARY OEDEMA [None]
  - MITRAL VALVE INCOMPETENCE [None]
  - ECONOMIC PROBLEM [None]
  - THROMBOCYTOPENIA [None]
  - COMA [None]
  - RHONCHI [None]
  - VIRAL INFECTION [None]
  - PULMONARY VALVE INCOMPETENCE [None]
